FAERS Safety Report 8762959 (Version 1)
Quarter: 2012Q4

REPORT INFORMATION
  Report Type: Spontaneous
  Country: US (occurrence: None)
  Receive Date: 20120831
  Receipt Date: 20120831
  Transmission Date: 20130627
  Serious: Yes (Hospitalization)
  Sender: FDA-Public Use
  Company Number: None

PATIENT
  Age: 42 Year
  Sex: Female
  Weight: 66.68 kg

DRUGS (2)
  1. SERTRALINE HCL [Suspect]
     Indication: IRRITABLE BOWEL SYNDROME
     Dosage: 30 QTY   1 tablet once daily
     Dates: start: 20120612, end: 20120711
  2. SERTRALINE HCL [Suspect]
     Indication: ANXIETY
     Dosage: 30 QTY   1 tablet once daily
     Dates: start: 20120612, end: 20120711

REACTIONS (7)
  - Dyskinesia [None]
  - Formication [None]
  - Muscle twitching [None]
  - Muscle tightness [None]
  - Arthralgia [None]
  - Dystonia [None]
  - Panic attack [None]
